FAERS Safety Report 5391331-X (Version None)
Quarter: 2007Q3

REPORT INFORMATION
  Report Type: 
  Country: None (occurrence: None)
  Receive Date: 20070719
  Receipt Date: 20070716
  Transmission Date: 20080115
  Serious: Yes (Disabling)
  Sender: FDA-Public Use
  Company Number: B0479534A

PATIENT
  Age: 47 Year
  Sex: Female
  Weight: 73 kg

DRUGS (4)
  1. SERETIDE [Suspect]
     Indication: CHRONIC OBSTRUCTIVE PULMONARY DISEASE
     Route: 055
     Dates: start: 20030101, end: 20070501
  2. SPIRIVA [Concomitant]
     Dosage: 18MCG PER DAY
     Route: 055
     Dates: start: 20040101
  3. FLUIMUCIL [Concomitant]
     Dosage: 600MG PER DAY
     Route: 048
     Dates: start: 20030101
  4. VENTOLIN [Concomitant]
     Dosage: 100MCG PER DAY
     Route: 055
     Dates: start: 20000101

REACTIONS (14)
  - ALOPECIA [None]
  - ARTHRALGIA [None]
  - DRUG WITHDRAWAL SYNDROME [None]
  - DYSPNOEA [None]
  - HAEMATOMA [None]
  - HYPERSENSITIVITY [None]
  - INFLAMMATION [None]
  - MALAISE [None]
  - MENOMETRORRHAGIA [None]
  - MENOPAUSAL SYMPTOMS [None]
  - MUSCLE SPASMS [None]
  - MYALGIA [None]
  - PYREXIA [None]
  - WEIGHT DECREASED [None]
